FAERS Safety Report 7585441-6 (Version None)
Quarter: 2011Q3

REPORT INFORMATION
  Report Type: 
  Country: None (occurrence: None)
  Receive Date: 20110701
  Receipt Date: 20110616
  Transmission Date: 20111222
  Serious: Yes (Hospitalization)
  Sender: FDA-Public Use
  Company Number: US-BAYER-201023623NA

PATIENT
  Age: 15 Year
  Sex: Female
  Weight: 65.909 kg

DRUGS (14)
  1. HYOSCYAMINE [Concomitant]
     Route: 065
     Dates: start: 19970101
  2. PROAIR HFA [Concomitant]
     Route: 065
     Dates: start: 20000101
  3. AUGMENTIN '125' [Concomitant]
     Route: 065
     Dates: start: 20000101
  4. IBUPROFEN [Concomitant]
     Indication: PELVIC PAIN
     Dosage: USE NOT OFTEN
     Route: 065
  5. PROTONIX [Concomitant]
     Dosage: 40 MG, UNK
     Route: 048
  6. ADVAIR DISKUS 100/50 [Concomitant]
     Route: 065
     Dates: start: 20050101
  7. PROMETHAZINE [Concomitant]
     Route: 065
     Dates: start: 19970101
  8. ACETAMINOPHEN AND HYDROCODONE BITARTRATE [Concomitant]
     Route: 065
     Dates: start: 19970101
  9. YAZ [Suspect]
     Indication: MENORRHAGIA
     Dosage: PFS: STARTED IN DEC-2007.
     Route: 048
     Dates: start: 20080101, end: 20080315
  10. CIPROFLOXACIN [Concomitant]
     Route: 065
     Dates: start: 19970101
  11. MIDOL IB [Concomitant]
     Indication: DYSMENORRHOEA
     Route: 065
  12. CHROMAGEN FA [Concomitant]
     Route: 065
     Dates: start: 19970101
  13. ADVAIR DISKUS 100/50 [Concomitant]
     Dosage: 1 PUFF(S), BID
  14. NSAID'S [Concomitant]
     Route: 065
     Dates: start: 20010101

REACTIONS (8)
  - HEPATOBILIARY SCAN ABNORMAL [None]
  - DYSPEPSIA [None]
  - CHOLECYSTITIS CHRONIC [None]
  - BILIARY COLIC [None]
  - NAUSEA [None]
  - DECREASED APPETITE [None]
  - ABDOMINAL PAIN UPPER [None]
  - BILIARY DYSKINESIA [None]
